FAERS Safety Report 24625291 (Version 2)
Quarter: 2024Q4

REPORT INFORMATION
  Report Type: Spontaneous
  Country: US (occurrence: US)
  Receive Date: 20241115
  Receipt Date: 20241128
  Transmission Date: 20250115
  Serious: No
  Sender: BLUEPRINT MEDICINES
  Company Number: US-Blueprint Medicines Corporation-5352

PATIENT
  Age: 77 Year
  Sex: Female

DRUGS (1)
  1. AYVAKIT [Suspect]
     Active Substance: AVAPRITINIB
     Indication: Mastocytoma
     Route: 048
     Dates: start: 20241023

REACTIONS (8)
  - Contusion [Unknown]
  - Rash macular [Unknown]
  - Rash [Unknown]
  - Headache [Unknown]
  - Insomnia [Recovered/Resolved]
  - Pruritus [Unknown]
  - Skin lesion [Unknown]
  - Off label use [Unknown]
